FAERS Safety Report 22656337 (Version 1)
Quarter: 2023Q2

REPORT INFORMATION
  Report Type: Spontaneous
  Country: JP (occurrence: JP)
  Receive Date: 20230629
  Receipt Date: 20230629
  Transmission Date: 20230721
  Serious: Yes (Other)
  Sender: FDA-Public Use
  Company Number: JP-002147023-NVSJ2023JP010499

PATIENT
  Sex: Female

DRUGS (1)
  1. GLYCOPYRROLATE\INDACATEROL\MOMETASONE FUROATE [Suspect]
     Active Substance: GLYCOPYRROLATE\INDACATEROL\MOMETASONE FUROATE
     Indication: Cough variant asthma
     Dosage: 1DF:INDACATEROL150UG,GLYCOPYRRONIUM50UG,MOMETASONE UNK
     Dates: end: 20230626

REACTIONS (4)
  - Arrhythmia [Not Recovered/Not Resolved]
  - Dyspnoea [Not Recovered/Not Resolved]
  - Somnolence [Recovered/Resolved]
  - Cystitis [Unknown]
